FAERS Safety Report 8816745 (Version 2)
Quarter: 2012Q4

REPORT INFORMATION
  Report Type: 
  Country: US (occurrence: None)
  Receive Date: 20121001
  Receipt Date: 20121011
  Transmission Date: 20130627
  Serious: Yes (Hospitalization)
  Sender: FDA-Public Use
  Company Number: JPI-P-025244

PATIENT
  Age: 52 Year
  Sex: Male

DRUGS (4)
  1. XYREM [Suspect]
     Indication: CATAPLEXY
     Route: 048
     Dates: start: 20120622
  2. XYREM [Suspect]
     Indication: CATAPLEXY
     Dosage: 7.5 GM (3.75 GM, 2 IN 1 D), ORAL
     Dates: start: 2012, end: 20120825
  3. FLUOXETINE HCL [Suspect]
     Indication: DEPRESSION
     Dates: end: 20120825
  4. UNSPECIFIED DRUG [Suspect]
     Indication: TESTICULAR PAIN

REACTIONS (9)
  - Overdose [None]
  - Respiratory arrest [None]
  - Cardiac arrest [None]
  - Dyspnoea [None]
  - Therapeutic response decreased [None]
  - Abnormal sleep-related event [None]
  - Insomnia [None]
  - Nightmare [None]
  - Hypersomnia [None]
